FAERS Safety Report 4341829-8 (Version None)
Quarter: 2004Q2

REPORT INFORMATION
  Report Type: 
  Country: None (occurrence: None)
  Receive Date: 20040416
  Receipt Date: 20040407
  Transmission Date: 20050107
  Serious: Yes (Hospitalization)
  Sender: FDA-Public Use
  Company Number: 440001M04USA

PATIENT
  Age: 56 Year
  Sex: Male

DRUGS (1)
  1. SEROTISM [ (SOMATROPIN (RDNA ORIGIN) FOR INJECTION) ] (SOMATROPIN) [Suspect]
     Indication: CACHEXIA
     Dosage: 4 MG, 1 IN 1 DAYS, SUBCUTANEOUS
     Route: 058

REACTIONS (1)
  - ACUTE MYOCARDIAL INFARCTION [None]
